FAERS Safety Report 18517965 (Version 1)
Quarter: 2020Q4

REPORT INFORMATION
  Report Type: Spontaneous
  Country: US (occurrence: US)
  Receive Date: 20201118
  Receipt Date: 20201118
  Transmission Date: 20210114
  Serious: No
  Sender: FDA-Public Use
  Company Number: US-PFIZER INC-2020445609

PATIENT
  Age: 58 Year
  Sex: Female
  Weight: 53.52 kg

DRUGS (4)
  1. EUCRISA [Suspect]
     Active Substance: CRISABOROLE
     Indication: DERMATITIS CONTACT
     Dosage: UNK, 2X/DAY (APPLY TO AFFECTED AREA OF FACE AND BODY)
     Route: 061
  2. FLUOCINOLONE [Concomitant]
     Active Substance: FLUOCINOLONE
     Dosage: UNK
  3. EUCRISA [Suspect]
     Active Substance: CRISABOROLE
     Dosage: UNK, 2X/DAY (AS NEEDED)
     Route: 061
     Dates: start: 202006
  4. DESONIDE. [Concomitant]
     Active Substance: DESONIDE
     Dosage: UNK

REACTIONS (3)
  - Road traffic accident [Unknown]
  - Off label use [Unknown]
  - Drug effective for unapproved indication [Unknown]
